FAERS Safety Report 26106852 (Version 1)
Quarter: 2025Q4

REPORT INFORMATION
  Report Type: Report from Study
  Country: US (occurrence: US)
  Receive Date: 20251201
  Receipt Date: 20251201
  Transmission Date: 20260118
  Serious: Yes (Hospitalization, Other)
  Sender: ALEXION PHARMACEUTICALS
  Company Number: US-AstraZeneca-CH-01002798A

PATIENT
  Age: 73 Year
  Sex: Female

DRUGS (1)
  1. SOLIRIS [Suspect]
     Active Substance: ECULIZUMAB
     Indication: Myasthenia gravis
     Dosage: UNK
     Route: 065

REACTIONS (9)
  - Blood sodium decreased [Unknown]
  - Irritable bowel syndrome [Unknown]
  - Muscular weakness [Unknown]
  - Diarrhoea [Unknown]
  - Immune system disorder [Unknown]
  - Sinusitis [Unknown]
  - COVID-19 [Unknown]
  - Disturbance in attention [Unknown]
  - Illness [Unknown]
